FAERS Safety Report 4968851-2 (Version None)
Quarter: 2006Q2

REPORT INFORMATION
  Report Type: 
  Country: None (occurrence: None)
  Receive Date: 20060405
  Receipt Date: 20060324
  Transmission Date: 20061013
  Serious: Yes (Death)
  Sender: FDA-Public Use
  Company Number: 2006042234

PATIENT
  Sex: Male
  Weight: 77.1115 kg

DRUGS (2)
  1. CARDURA [Suspect]
     Indication: HYPERTENSION
  2. BAYCOL [Suspect]
     Indication: ILL-DEFINED DISORDER

REACTIONS (8)
  - ANAPLASTIC ASTROCYTOMA [None]
  - BLOOD TRIGLYCERIDES INCREASED [None]
  - CEREBROVASCULAR ACCIDENT [None]
  - DISORIENTATION [None]
  - GRAND MAL CONVULSION [None]
  - MUSCULAR WEAKNESS [None]
  - MYOCARDIAL INFARCTION [None]
  - THERAPY NON-RESPONDER [None]
